FAERS Safety Report 25230355 (Version 1)
Quarter: 2025Q2

REPORT INFORMATION
  Report Type: Spontaneous
  Country: TW (occurrence: TW)
  Receive Date: 20250423
  Receipt Date: 20250423
  Transmission Date: 20250717
  Serious: Yes (Hospitalization)
  Sender: PFIZER
  Company Number: TW-MLMSERVICE-20250403-PI466563-00270-5

PATIENT
  Age: 73 Year
  Sex: Male

DRUGS (4)
  1. METHYLPREDNISOLONE SODIUM SUCCINATE [Suspect]
     Active Substance: METHYLPREDNISOLONE SODIUM SUCCINATE
     Indication: COVID-19 pneumonia
     Dosage: THREE PULSES OF 500 MG IV METHYLPREDNISOLONE FOR THREE CONSECUTIVE DAY
     Route: 042
  2. DEXAMETHASONE [Suspect]
     Active Substance: DEXAMETHASONE
     Indication: COVID-19 pneumonia
     Dosage: 8 MG, 1X/DAY
     Route: 042
  3. TOCILIZUMAB [Suspect]
     Active Substance: TOCILIZUMAB
     Indication: COVID-19 pneumonia
     Dosage: 400 MG IV FOR TWO CONSECUTIVE DAYS
     Route: 042
  4. AMLODIPINE [Concomitant]
     Active Substance: AMLODIPINE BESYLATE
     Indication: Hypertension
     Dosage: 5 MG, 2X/DAY

REACTIONS (6)
  - Pneumothorax [Recovering/Resolving]
  - Pulmonary calcification [Unknown]
  - Pulmonary cavitation [Unknown]
  - Pulmonary haemorrhage [Unknown]
  - Klebsiella infection [Unknown]
  - Lung abscess [Unknown]
